FAERS Safety Report 11628379 (Version 1)
Quarter: 2015Q4

REPORT INFORMATION
  Report Type: Spontaneous
  Country: US (occurrence: None)
  Receive Date: 20151013
  Receipt Date: 20151013
  Transmission Date: 20160304
  Serious: Yes (Hospitalization, Other)
  Sender: FDA-Public Use
  Company Number: None

PATIENT
  Age: 44 Year
  Sex: Female

DRUGS (1)
  1. PICATO [Suspect]
     Active Substance: INGENOL MEBUTATE
     Indication: PRECANCEROUS CELLS PRESENT
     Route: 061
     Dates: start: 20150528, end: 20150530

REACTIONS (4)
  - Swelling face [None]
  - Ear pain [None]
  - Eye pain [None]
  - Herpes zoster [None]

NARRATIVE: CASE EVENT DATE: 20150702
